FAERS Safety Report 6566483-6 (Version None)
Quarter: 2010Q1

REPORT INFORMATION
  Report Type: 
  Country: None (occurrence: None)
  Receive Date: 20100202
  Receipt Date: 20100127
  Transmission Date: 20100710
  Serious: Yes (Other)
  Sender: FDA-Public Use
  Company Number: GB-ROXANE LABORATORIES, INC.-2010-RO-00107RO

PATIENT
  Age: 9 Year
  Sex: Female

DRUGS (7)
  1. TOPIRAMATE [Suspect]
     Indication: COMPLEX PARTIAL SEIZURES
  2. TOPIRAMATE [Suspect]
  3. LEVETIRACETAM [Suspect]
     Indication: COMPLEX PARTIAL SEIZURES
  4. CARBAMAZEPINE [Suspect]
     Indication: COMPLEX PARTIAL SEIZURES
  5. VALPROATE SODIUM [Suspect]
     Indication: COMPLEX PARTIAL SEIZURES
  6. CLOBAZAM [Concomitant]
     Indication: COMPLEX PARTIAL SEIZURES
  7. GABAPENTIN [Concomitant]
     Indication: COMPLEX PARTIAL SEIZURES

REACTIONS (3)
  - ALLODYNIA [None]
  - CONVULSION [None]
  - DRUG INEFFECTIVE [None]
